FAERS Safety Report 15202423 (Version 1)
Quarter: 2018Q3

REPORT INFORMATION
  Report Type: Spontaneous
  Country: ES (occurrence: ES)
  Receive Date: 20180726
  Receipt Date: 20180726
  Transmission Date: 20181010
  Serious: Yes (Other)
  Sender: FDA-Public Use
  Company Number: ES-BRISTOL-MYERS SQUIBB COMPANY-BMS-2018-068093

PATIENT
  Sex: Male

DRUGS (1)
  1. NIVOLUMAB [Suspect]
     Active Substance: NIVOLUMAB
     Indication: TRANSPLANT
     Dosage: UNK
     Route: 065

REACTIONS (4)
  - Liver disorder [Unknown]
  - Product use in unapproved indication [Unknown]
  - Pneumonitis [Unknown]
  - Dermatitis [Unknown]
